FAERS Safety Report 23974128 (Version 2)
Quarter: 2024Q3

REPORT INFORMATION
  Report Type: Report from Study
  Country: US (occurrence: US)
  Receive Date: 20240614
  Receipt Date: 20240718
  Transmission Date: 20241016
  Serious: Yes (Other)
  Sender: ACADIA PHARMACEUTICALS
  Company Number: US-ACADIA PHARMACEUTICALS INC.-ACA-2024-PIM-002489

PATIENT
  Age: 80 Year
  Sex: Female

DRUGS (16)
  1. NUPLAZID [Suspect]
     Active Substance: PIMAVANSERIN TARTRATE
     Indication: Parkinson^s disease psychosis
     Dosage: 34 MILLIGRAM, QD
     Route: 048
     Dates: start: 20240423
  2. NUPLAZID [Suspect]
     Active Substance: PIMAVANSERIN TARTRATE
     Dosage: TOOK THE MEDICATION AT A DIFFERENT TIME
     Route: 048
  3. IBUPROFEN [Concomitant]
     Active Substance: IBUPROFEN
  4. MECLIZINE [Concomitant]
     Active Substance: MECLIZINE HYDROCHLORIDE
  5. LINZESS [Concomitant]
     Active Substance: LINACLOTIDE
  6. BACLOFEN [Concomitant]
     Active Substance: BACLOFEN
  7. MIDODRINE [Concomitant]
     Active Substance: MIDODRINE
  8. DONEPEZIL [Concomitant]
     Active Substance: DONEPEZIL\DONEPEZIL HYDROCHLORIDE
  9. CARBIDOPA [Concomitant]
     Active Substance: CARBIDOPA
  10. SELEGILINE [Concomitant]
     Active Substance: SELEGILINE
  11. FLAX SEEDS [Concomitant]
     Active Substance: FLAX SEEDS
  12. SERTRALINE [Concomitant]
     Active Substance: SERTRALINE HYDROCHLORIDE
  13. COBAMAMIDE [Concomitant]
     Active Substance: COBAMAMIDE
  14. FUROSEMIDE [Concomitant]
     Active Substance: FUROSEMIDE
  15. VITAMIN B COMPLEX [Concomitant]
     Active Substance: CYANOCOBALAMIN\DEXPANTHENOL\NIACINAMIDE\PYRIDOXINE HYDROCHLORIDE\RIBOFLAVIN 5^-PHOSPHATE SODIUM\THIA
  16. GAS RELIEF [Concomitant]
     Active Substance: DIMETHICONE

REACTIONS (4)
  - Loss of consciousness [Recovered/Resolved]
  - Inappropriate schedule of product administration [Not Recovered/Not Resolved]
  - Therapeutic product effect variable [Not Recovered/Not Resolved]
  - Suture insertion [Recovered/Resolved]

NARRATIVE: CASE EVENT DATE: 20240510
